FAERS Safety Report 5367591-8 (Version None)
Quarter: 2007Q2

REPORT INFORMATION
  Report Type: 
  Country: None (occurrence: None)
  Receive Date: 20070622
  Receipt Date: 20061212
  Transmission Date: 20071010
  Serious: No
  Sender: FDA-Public Use
  Company Number: US-ASTRAZENECA-2006UW27602

PATIENT
  Age: 70 Year
  Sex: Female
  Weight: 86.2 kg

DRUGS (2)
  1. PULMICORT [Suspect]
     Indication: ASTHMA
     Dosage: 2 PUFFS BID
     Route: 055
  2. FLONASE [Concomitant]

REACTIONS (2)
  - TEMPERATURE INTOLERANCE [None]
  - TONGUE DISORDER [None]
